FAERS Safety Report 5226395-7 (Version None)
Quarter: 2007Q1

REPORT INFORMATION
  Report Type: 
  Country: None (occurrence: None)
  Receive Date: 20070201
  Receipt Date: 20070119
  Transmission Date: 20070707
  Serious: Yes (Hospitalization)
  Sender: FDA-Public Use
  Company Number: US-ELI_LILLY_AND_COMPANY-US200701003827

PATIENT
  Age: 57 Year
  Sex: Male

DRUGS (3)
  1. FORTEO [Suspect]
     Dates: start: 20061019
  2. PROSCAR                                 /USA/ [Concomitant]
     Indication: PROSTATE EXAMINATION ABNORMAL
     Dates: start: 20010101
  3. HYTRIN [Concomitant]
     Indication: PROSTATE EXAMINATION ABNORMAL
     Dates: start: 20010101

REACTIONS (4)
  - CHEST DISCOMFORT [None]
  - CHEST PAIN [None]
  - MUSCULOSKELETAL DISCOMFORT [None]
  - SOFT TISSUE DISORDER [None]
